FAERS Safety Report 10178307 (Version 1)
Quarter: 2014Q2

REPORT INFORMATION
  Report Type: Spontaneous
  Country: FR (occurrence: FR)
  Receive Date: 20140519
  Receipt Date: 20140519
  Transmission Date: 20141212
  Serious: Yes (Death)
  Sender: FDA-Public Use
  Company Number: FR-ROCHE-1402363

PATIENT
  Age: 68 Year
  Sex: Female

DRUGS (12)
  1. AVASTIN [Suspect]
     Indication: LUNG NEOPLASM MALIGNANT
     Route: 042
     Dates: start: 20140214, end: 20140214
  2. CARBOPLATIN [Suspect]
     Indication: LUNG NEOPLASM MALIGNANT
     Route: 042
     Dates: start: 20140214, end: 20140214
  3. ALIMTA [Suspect]
     Indication: LUNG NEOPLASM MALIGNANT
     Route: 042
     Dates: start: 20140214, end: 20140214
  4. VISIPAQUE [Concomitant]
     Route: 065
     Dates: start: 20140212
  5. LASILIX [Concomitant]
     Route: 065
  6. VANCOMYCINE [Concomitant]
  7. TRIFLUCAN [Concomitant]
  8. ACYCLOVIR [Concomitant]
  9. TIENAM [Concomitant]
  10. TARGOCID [Concomitant]
  11. FLUCONAZOLE [Concomitant]
  12. HYPNOVEL (FRANCE) [Concomitant]

REACTIONS (4)
  - Bone marrow failure [Fatal]
  - Pyrexia [Fatal]
  - Haemorrhage [Fatal]
  - Infection [Fatal]
